FAERS Safety Report 22136134 (Version 1)
Quarter: 2023Q1

REPORT INFORMATION
  Report Type: Spontaneous
  Country: US (occurrence: None)
  Receive Date: 20230323
  Receipt Date: 20230323
  Transmission Date: 20230418
  Serious: No
  Sender: FDA-Public Use
  Company Number: None

PATIENT
  Sex: Female

DRUGS (1)
  1. BEXAROTENE [Suspect]
     Active Substance: BEXAROTENE
     Dosage: FREQUENCY : DAILY;?
     Route: 048

REACTIONS (2)
  - Therapy cessation [None]
  - Neoplasm malignant [None]
